FAERS Safety Report 5978020-5 (Version None)
Quarter: 2008Q4

REPORT INFORMATION
  Report Type: 
  Country: None (occurrence: None)
  Receive Date: 20081125
  Receipt Date: 20081113
  Transmission Date: 20090506
  Serious: No
  Sender: FDA-Public Use
  Company Number: 2008-186893-NL

PATIENT
  Sex: Female

DRUGS (1)
  1. ESTONGESTREL [Suspect]
     Indication: CONTRACEPTION
     Dosage: DF
     Dates: start: 20080701

REACTIONS (2)
  - ANAPHYLACTIC SHOCK [None]
  - OEDEMA [None]
